FAERS Safety Report 20308833 (Version 1)
Quarter: 2022Q1

REPORT INFORMATION
  Report Type: Spontaneous
  Country: US (occurrence: US)
  Receive Date: 20220107
  Receipt Date: 20220107
  Transmission Date: 20220423
  Serious: Yes (Other)
  Sender: FDA-Public Use
  Company Number: US-GLAXOSMITHKLINE-US2022GSK001564

PATIENT
  Sex: Male

DRUGS (4)
  1. RANITIDINE [Suspect]
     Active Substance: RANITIDINE
     Indication: Multiple allergies
     Dosage: 150 MG, QD
     Route: 065
     Dates: start: 200104, end: 201305
  2. RANITIDINE [Suspect]
     Active Substance: RANITIDINE
     Indication: Multiple allergies
     Dosage: 150 MG, QD
     Route: 065
     Dates: start: 200104, end: 201305
  3. RANITIDINE HYDROCHLORIDE [Suspect]
     Active Substance: RANITIDINE HYDROCHLORIDE
     Indication: Multiple allergies
     Dosage: UNK UNK, QD
     Route: 065
     Dates: start: 200104, end: 201604
  4. ZANTAC [Suspect]
     Active Substance: RANITIDINE HYDROCHLORIDE
     Indication: Multiple allergies
     Dosage: UNK UNK, QD
     Route: 065
     Dates: start: 200104, end: 201604

REACTIONS (1)
  - Bladder cancer [Unknown]
